FAERS Safety Report 8916918 (Version 16)
Quarter: 2014Q1

REPORT INFORMATION
  Report Type: Spontaneous
  Country: US (occurrence: US)
  Receive Date: 20121120
  Receipt Date: 20140219
  Transmission Date: 20141002
  Serious: No
  Sender: FDA-Public Use
  Company Number: US-PFIZER INC-2012288277

PATIENT
  Age: 62 Year
  Sex: Female
  Weight: 58.96 kg

DRUGS (21)
  1. SUTENT [Suspect]
     Indication: GASTROINTESTINAL STROMAL TUMOUR
     Dosage: 37.5 MG, UNK
     Route: 048
     Dates: start: 20070101, end: 20121101
  2. SUTENT [Suspect]
     Dosage: 25 MG, 1X/DAY
     Route: 048
     Dates: start: 2008
  3. SUTENT [Suspect]
     Dosage: 25 MG, ONCE A WEEK (FOR 4 WEEKS FOLLOWED BY 2 WEEKS WASH OUT PERIOD)
     Route: 048
     Dates: start: 2011
  4. SUTENT [Suspect]
     Dosage: 25 MG, 1X/DAY(1 WEEK ON 2 WEEKS OFF)
     Route: 048
     Dates: start: 20130106
  5. SUTENT [Suspect]
     Dosage: 25 MG, 1 WEEK ON 2-3WEEKS OFF
     Route: 048
  6. SUTENT [Suspect]
     Dosage: 25 MG, UNK
     Route: 048
  7. POTASSIUM [Suspect]
     Dosage: UNK
  8. VITAMIN D [Concomitant]
     Dosage: UNK, WEEKLY
  9. LEVOTHYROXINE [Concomitant]
     Indication: HYPOTHYROIDISM
     Dosage: UNK
  10. BENADRYL [Concomitant]
     Dosage: UNK
  11. TYLENOL [Concomitant]
     Dosage: UNK, AS NEEDED
  12. VITAMIN B [Concomitant]
     Dosage: UNK
  13. ZOLPIDEM [Concomitant]
     Indication: INSOMNIA
     Dosage: UNK, AS NEEDED
  14. VERAMYST [Concomitant]
     Dosage: UNK
  15. THYROID [Concomitant]
     Dosage: 100 MG, UNK
  16. THYROID [Concomitant]
     Dosage: 75 MG, UNK
  17. IBUPROFEN [Concomitant]
     Dosage: UNK, AS NEEDED
  18. BIPHOSPHONATE [Concomitant]
     Dosage: UNK (YEARLY) INFUSION
  19. PREMARIN [Concomitant]
     Dosage: UNK
  20. OXYCODONE [Concomitant]
     Dosage: UNK
  21. VANCOMYCIN [Concomitant]

REACTIONS (28)
  - Tremor [Recovered/Resolved]
  - Hyperkeratosis [Recovering/Resolving]
  - Eyelid oedema [Unknown]
  - Rhinorrhoea [Unknown]
  - Laryngitis [Unknown]
  - Influenza [Unknown]
  - Sinus congestion [Unknown]
  - Paraesthesia [Unknown]
  - Pain in extremity [Unknown]
  - Insomnia [Not Recovered/Not Resolved]
  - Dysgeusia [Not Recovered/Not Resolved]
  - Blood pressure increased [Unknown]
  - Palmar-plantar erythrodysaesthesia syndrome [Not Recovered/Not Resolved]
  - Pain [Unknown]
  - Dry mouth [Not Recovered/Not Resolved]
  - Vulvovaginal dryness [Unknown]
  - Hyperkeratosis [Unknown]
  - Bunion [Unknown]
  - Local swelling [Unknown]
  - Muscle spasms [Unknown]
  - Chest pain [Unknown]
  - Pain in extremity [Unknown]
  - Gastrointestinal infection [Unknown]
  - Bronchitis [Unknown]
  - Nasopharyngitis [Unknown]
  - Pain [Unknown]
  - Limb discomfort [Unknown]
  - Rash [Recovered/Resolved]
